FAERS Safety Report 7959978-1 (Version None)
Quarter: 2011Q4

REPORT INFORMATION
  Report Type: 
  Country: None (occurrence: None)
  Receive Date: 20111206
  Receipt Date: 20111122
  Transmission Date: 20120403
  Serious: Yes (Other)
  Sender: FDA-Public Use
  Company Number: CN-CELGENEUS-035-AB007-11113857

PATIENT

DRUGS (1)
  1. ABRAXANE [Suspect]
     Indication: NON-SMALL CELL LUNG CANCER
     Route: 065

REACTIONS (7)
  - ANAEMIA [None]
  - THROMBOCYTOPENIA [None]
  - ALOPECIA [None]
  - LEUKOPENIA [None]
  - NEUROPATHY PERIPHERAL [None]
  - FATIGUE [None]
  - HEPATIC FUNCTION ABNORMAL [None]
